FAERS Safety Report 16497769 (Version 3)
Quarter: 2019Q3

REPORT INFORMATION
  Report Type: Report from Study
  Country: CA (occurrence: CA)
  Receive Date: 20190628
  Receipt Date: 20190723
  Transmission Date: 20191004
  Serious: Yes (Hospitalization)
  Sender: FDA-Public Use
  Company Number: CA-GLAXOSMITHKLINE-CA2019AMR111052

PATIENT
  Sex: Female

DRUGS (1)
  1. MEPOLIZUMAB [Suspect]
     Active Substance: MEPOLIZUMAB
     Indication: ASTHMA
     Dosage: 100 MG, Z, MONTHLY
     Route: 042
     Dates: start: 20180618

REACTIONS (10)
  - Hypotension [Unknown]
  - Condition aggravated [Unknown]
  - Heart rate increased [Unknown]
  - Tachycardia [Unknown]
  - Skin burning sensation [Unknown]
  - Secretion discharge [Unknown]
  - Memory impairment [Unknown]
  - Vital functions abnormal [Unknown]
  - Localised infection [Unknown]
  - Blood pressure decreased [Unknown]
